FAERS Safety Report 7652574-5 (Version None)
Quarter: 2011Q3

REPORT INFORMATION
  Report Type: 
  Country: None (occurrence: None)
  Receive Date: 20110801
  Receipt Date: 20110801
  Transmission Date: 20111222
  Serious: No
  Sender: FDA-Public Use
  Company Number: None

PATIENT

DRUGS (1)
  1. HYDROCHLOROTHIAZIDE [Suspect]
     Dates: start: 20110619, end: 20110621

REACTIONS (3)
  - PALPITATIONS [None]
  - CHEST DISCOMFORT [None]
  - PRODUCT QUALITY ISSUE [None]
